FAERS Safety Report 6453938-8 (Version None)
Quarter: 2009Q4

REPORT INFORMATION
  Report Type: 
  Country: None (occurrence: None)
  Receive Date: 20091124
  Receipt Date: 20091119
  Transmission Date: 20100525
  Serious: Yes (Death)
  Sender: FDA-Public Use
  Company Number: JP-BAYER-200912776BYL

PATIENT
  Age: 61 Year
  Sex: Male
  Weight: 43 kg

DRUGS (3)
  1. NEXAVAR [Suspect]
     Indication: HEPATIC NEOPLASM MALIGNANT
     Dosage: TOTAL DAILY DOSE: 800 MG  UNIT DOSE: 200 MG
     Route: 048
     Dates: start: 20090707, end: 20090717
  2. HIRUDOID [Concomitant]
     Indication: PROPHYLAXIS
     Dosage: 7-8ML/DAY
     Route: 061
     Dates: start: 20090706, end: 20090716
  3. NORVASC [Concomitant]
     Route: 048
     Dates: start: 20090501, end: 20090802

REACTIONS (3)
  - ABDOMINAL PAIN [None]
  - HEPATIC NEOPLASM MALIGNANT [None]
  - PALMAR-PLANTAR ERYTHRODYSAESTHESIA SYNDROME [None]
